FAERS Safety Report 16921179 (Version 1)
Quarter: 2019Q4

REPORT INFORMATION
  Report Type: Spontaneous
  Country: US (occurrence: US)
  Receive Date: 20191015
  Receipt Date: 20191015
  Transmission Date: 20200122
  Serious: Yes (Death)
  Sender: FDA-Public Use
  Company Number: US-BIOCODEX SA-201901286

PATIENT

DRUGS (1)
  1. DIACOMIT [Suspect]
     Active Substance: STIRIPENTOL
     Indication: PRODUCT USED FOR UNKNOWN INDICATION
     Dosage: HALF PACKET VIA G-TUBE EVERY MORNING AND ONE PACKET EVERY NIGHT AT BEDTIME.
     Route: 065
     Dates: start: 20190717, end: 20191002

REACTIONS (1)
  - Death [Fatal]

NARRATIVE: CASE EVENT DATE: 20191002
